FAERS Safety Report 16539552 (Version 3)
Quarter: 2019Q3

REPORT INFORMATION
  Report Type: Spontaneous
  Country: IN (occurrence: IN)
  Receive Date: 20190708
  Receipt Date: 20190905
  Transmission Date: 20191004
  Serious: Yes (Other)
  Sender: FDA-Public Use
  Company Number: IN-ROCHE-2351052

PATIENT

DRUGS (1)
  1. ACCENTRIX [Suspect]
     Active Substance: RANIBIZUMAB
     Indication: PRODUCT USED FOR UNKNOWN INDICATION
     Dosage: 2.3 MG IN 0.23 ML SOLUTION
     Route: 065
     Dates: start: 20190625

REACTIONS (4)
  - Vision blurred [Unknown]
  - Vitreous disorder [Unknown]
  - Vitreous haze [Unknown]
  - Vasculitis [Unknown]

NARRATIVE: CASE EVENT DATE: 20190627
